FAERS Safety Report 10226650 (Version 1)
Quarter: 2014Q2

REPORT INFORMATION
  Report Type: Spontaneous
  Country: FR (occurrence: FR)
  Receive Date: 20140609
  Receipt Date: 20140609
  Transmission Date: 20141212
  Serious: Yes (Hospitalization)
  Sender: FDA-Public Use
  Company Number: PHHY2014FR069920

PATIENT
  Age: 51 Year
  Sex: Female

DRUGS (5)
  1. NEORAL [Suspect]
     Route: 048
     Dates: start: 20131201
  2. DEROXAT [Suspect]
     Dosage: 20 MG, UNK
     Route: 048
     Dates: start: 201401
  3. ZELITREX [Suspect]
     Dosage: 250 MG, UNK
     Route: 048
     Dates: start: 201308
  4. BACTRIM [Concomitant]
     Dates: start: 201308
  5. LEXOMIL [Concomitant]
     Dates: start: 201401

REACTIONS (2)
  - Cerebellar syndrome [Not Recovered/Not Resolved]
  - Extrapyramidal disorder [Not Recovered/Not Resolved]
